FAERS Safety Report 19934415 (Version 1)
Quarter: 2021Q4

REPORT INFORMATION
  Report Type: Spontaneous
  Country: US (occurrence: US)
  Receive Date: 20211008
  Receipt Date: 20211008
  Transmission Date: 20220303
  Serious: Yes (Death, Hospitalization)
  Sender: FDA-Public Use
  Company Number: US-JNJFOC-20210952673

PATIENT
  Age: 32 Year
  Sex: Male
  Weight: 73.4 kg

DRUGS (1)
  1. ACETAMINOPHEN [Suspect]
     Active Substance: ACETAMINOPHEN
     Indication: Suicide attempt
     Dosage: SINGLE DOSE OF 300 CAPSULES (APPROXIMATELY 90 G)
     Route: 048
     Dates: start: 20030614

REACTIONS (9)
  - Completed suicide [Fatal]
  - Brain herniation [Fatal]
  - Brain oedema [Fatal]
  - Pulmonary oedema [Fatal]
  - Pleural effusion [Fatal]
  - Enterobacter infection [Fatal]
  - Acute hepatic failure [Fatal]
  - Acute kidney injury [Fatal]
  - Intentional overdose [Fatal]
